FAERS Safety Report 9822525 (Version 3)
Quarter: 2014Q1

REPORT INFORMATION
  Report Type: Report from Study
  Country: IN (occurrence: IN)
  Receive Date: 20140116
  Receipt Date: 20140207
  Transmission Date: 20141002
  Serious: Yes (Life-Threatening, Hospitalization)
  Sender: FDA-Public Use
  Company Number: PHHO2014IN000757

PATIENT
  Sex: 0

DRUGS (2)
  1. ILOPERIDONE [Suspect]
     Indication: SCHIZOPHRENIA
     Route: 048
     Dates: start: 20140109, end: 20140111
  2. TRIHEXYPHENIDYL [Concomitant]
     Indication: EXTRAPYRAMIDAL DISORDER
     Dosage: 2 MG, QD
     Route: 048
     Dates: start: 20140109, end: 20140111

REACTIONS (3)
  - Hyponatraemia [Recovered/Resolved]
  - Convulsion [Recovered/Resolved]
  - Femoral neck fracture [Recovered/Resolved with Sequelae]
